FAERS Safety Report 15323043 (Version 1)
Quarter: 2018Q4

REPORT INFORMATION
  Report Type: Spontaneous
  Country: TW (occurrence: TW)
  Receive Date: 20180827
  Receipt Date: 20180827
  Transmission Date: 20190204
  Serious: Yes (Death, Life-Threatening, Other)
  Sender: FDA-Public Use
  Company Number: TW-BAYER-2018-159867

PATIENT
  Age: 71 Year
  Sex: Male

DRUGS (16)
  1. TRANEXAMIC [Concomitant]
     Dosage: 500 MG, Q8HR
     Dates: start: 20180725
  2. CIPROXIN 400/200 MG/ML [Suspect]
     Active Substance: CIPROFLOXACIN
     Indication: PSEUDARTHROSIS
     Dosage: UNK
     Dates: start: 20180814, end: 20180817
  3. SULFADIAZINE. [Suspect]
     Active Substance: SULFADIAZINE
  4. MORPHINE HCL DAINIPPON [Concomitant]
     Active Substance: MORPHINE HYDROCHLORIDE
     Dosage: 6 MG, UNK
     Dates: start: 20180729
  5. CALCIUM CARBONATE. [Concomitant]
     Active Substance: CALCIUM CARBONATE
     Dosage: 1500 MG, TID
     Dates: start: 20180724, end: 20180817
  6. ALBUMIN [Concomitant]
     Active Substance: ALBUMIN HUMAN
     Dosage: UNK
     Dates: start: 20180815
  7. BETAMETHASONE. [Suspect]
     Active Substance: BETAMETHASONE
  8. VALTREX [Suspect]
     Active Substance: VALACYCLOVIR HYDROCHLORIDE
  9. SENNOSIDE [Concomitant]
     Active Substance: SENNOSIDES
     Dosage: 20 MG, HS
     Dates: start: 20180724, end: 20180814
  10. ESOMEPRAZOLE. [Concomitant]
     Active Substance: ESOMEPRAZOLE MAGNESIUM
     Dosage: 40 MG, QD
     Dates: start: 20180813, end: 20180821
  11. TRAMADOL. [Concomitant]
     Active Substance: TRAMADOL
     Dosage: 362.5 MG, BID
     Dates: start: 20180724, end: 20180817
  12. EPOETIN BETA [Concomitant]
     Active Substance: ERYTHROPOIETIN
     Dosage: 500 IU, Q3WK
  13. VANCOMYCIN [Suspect]
     Active Substance: VANCOMYCIN
     Dosage: 16.8 UG/L, UNK
     Dates: start: 20180729, end: 20180817
  14. SOFRAMYCIN [FRAMYCETIN SULFATE] [Suspect]
     Active Substance: FRAMYCETIN SULFATE
  15. ACETYLCYSTEINE. [Concomitant]
     Active Substance: ACETYLCYSTEINE
     Dosage: 600 MG, QD
     Dates: start: 20180802, end: 20180817
  16. CELECOXIB. [Concomitant]
     Active Substance: CELECOXIB
     Dosage: 200 MG, UNK
     Dates: start: 20180725

REACTIONS (7)
  - Rash vesicular [None]
  - Skin exfoliation [None]
  - Rash [None]
  - Stevens-Johnson syndrome [None]
  - Chest discomfort [None]
  - Acute myocardial infarction [Fatal]
  - Herpes zoster [None]

NARRATIVE: CASE EVENT DATE: 20180816
